FAERS Safety Report 14448297 (Version 1)
Quarter: 2018Q1

REPORT INFORMATION
  Report Type: Spontaneous
  Country: US (occurrence: US)
  Receive Date: 20180126
  Receipt Date: 20180126
  Transmission Date: 20180509
  Serious: No
  Sender: FDA-Public Use
  Company Number: US-MYLANLABS-2018M1004082

PATIENT
  Age: 71 Year
  Sex: Female
  Weight: 52 kg

DRUGS (1)
  1. CLONIDINE TRANSDERMAL SYSTEM [Suspect]
     Active Substance: CLONIDINE
     Indication: HYPERTENSION
     Dosage: 3 MG, UNK
     Route: 062
     Dates: start: 20171222

REACTIONS (5)
  - Application site reaction [Unknown]
  - Hypertension [Recovered/Resolved]
  - Application site erythema [Not Recovered/Not Resolved]
  - Application site pruritus [Not Recovered/Not Resolved]
  - Application site discomfort [Not Recovered/Not Resolved]

NARRATIVE: CASE EVENT DATE: 20171222
